FAERS Safety Report 21271676 (Version 3)
Quarter: 2022Q3

REPORT INFORMATION
  Report Type: Report from Study
  Country: AU (occurrence: AU)
  Receive Date: 20220830
  Receipt Date: 20220923
  Transmission Date: 20221026
  Serious: Yes (Hospitalization)
  Sender: FDA-Public Use
  Company Number: AU-KARYOPHARM-2022KPT000966

PATIENT
  Age: 54 Year
  Sex: Male
  Weight: 71.7 kg

DRUGS (21)
  1. SELINEXOR [Suspect]
     Active Substance: SELINEXOR
     Indication: Plasma cell myeloma
     Dosage: 40 MG
     Route: 048
     Dates: start: 20220125, end: 20220816
  2. LENALIDOMIDE [Suspect]
     Active Substance: LENALIDOMIDE
     Indication: Plasma cell myeloma
     Dosage: 10 MG
     Route: 048
     Dates: start: 20220125, end: 20220816
  3. VALACYCLOVIR HYDROCHLORIDE [Concomitant]
     Active Substance: VALACYCLOVIR HYDROCHLORIDE
     Indication: Antiviral prophylaxis
     Dosage: 500 MG, QD
     Dates: start: 20210212
  4. SULFAMETHOXAZOLE\TRIMETHOPRIM [Concomitant]
     Active Substance: SULFAMETHOXAZOLE\TRIMETHOPRIM
     Indication: Antifungal prophylaxis
     Dosage: UNK, 2X/WEEK ON M + TH
     Dates: start: 20210212, end: 2022
  5. ASPIRIN [Concomitant]
     Active Substance: ASPIRIN
     Indication: Thrombosis prophylaxis
     Dosage: 100 MG, QD
     Dates: start: 20220125
  6. PANTOPRAZOLE [Concomitant]
     Active Substance: PANTOPRAZOLE
     Indication: Gastrooesophageal reflux disease
     Dosage: 40 MG, QD
     Dates: start: 20210212, end: 2022
  7. ENDEP [Concomitant]
     Active Substance: AMITRIPTYLINE HYDROCHLORIDE
     Indication: Neuropathy peripheral
     Dosage: 25 G, QD
     Dates: start: 202104, end: 2022
  8. POTASSIUM CHLORIDE [Concomitant]
     Active Substance: POTASSIUM CHLORIDE
     Indication: Hypokalaemia
     Dosage: 600 MG, BID
     Route: 048
     Dates: start: 20220127, end: 2022
  9. CYANOCOBALAMIN [Concomitant]
     Active Substance: CYANOCOBALAMIN
     Indication: Vitamin B12 deficiency
     Dosage: 1000 MG, QD
     Dates: start: 20220207
  10. ZOMETA [Concomitant]
     Active Substance: ZOLEDRONIC ACID
     Indication: Plasma cell myeloma
     Dosage: 4 MG, MONTHLY
     Dates: start: 20220312
  11. ALLOPURINOL [Concomitant]
     Active Substance: ALLOPURINOL
     Indication: Gout
     Dosage: 300 MG, QOD
     Dates: start: 202111, end: 2022
  12. GRANULOCYTE COLONY-STIMULATING FACTOR NOS [Concomitant]
     Active Substance: GRANULOCYTE COLONY-STIMULATING FACTOR NOS
     Indication: Neutropenia
     Dosage: 300 UG, 3X/WEEK ON M, W, F
     Dates: start: 20220419, end: 20220426
  13. GRANULOCYTE COLONY-STIMULATING FACTOR NOS [Concomitant]
     Active Substance: GRANULOCYTE COLONY-STIMULATING FACTOR NOS
     Indication: Prophylaxis
     Dosage: 480 UG, WEEKLY
     Dates: start: 20220429, end: 20220510
  14. SORBOLENE [Concomitant]
     Indication: Dermatitis
     Dosage: UNK, QD
     Route: 061
     Dates: start: 20220419
  15. CALTRATE [Concomitant]
     Active Substance: CALCIUM CARBONATE
     Indication: Plasma cell myeloma
     Dosage: 1.2 G, QD
     Dates: start: 20220505
  16. VITAMIN D3 [Concomitant]
     Active Substance: CHOLECALCIFEROL
     Indication: Prophylaxis
     Dosage: 1000 IU, QD
     Route: 048
     Dates: start: 20210202
  17. ZINC CREAM [Concomitant]
     Indication: Anal fissure
     Dosage: UNK UNK, BID
     Route: 061
     Dates: start: 20220419
  18. METAMUCIL THERAPY FOR REGULARITY [Concomitant]
     Active Substance: PSYLLIUM HUSK
     Indication: Constipation
     Dosage: 1 TB, BID
     Route: 048
     Dates: start: 20220419
  19. ONDANSETRON [Concomitant]
     Active Substance: ONDANSETRON
     Indication: Prophylaxis of nausea and vomiting
     Dosage: 4-8 MG, TDS PRN
     Dates: start: 20220805
  20. METOCLOPRAMIDE [Concomitant]
     Active Substance: METOCLOPRAMIDE
     Indication: Prophylaxis of nausea and vomiting
     Dosage: 10 MG, TDS PRN
     Dates: start: 20220504
  21. ACETAMINOPHEN [Concomitant]
     Active Substance: ACETAMINOPHEN
     Indication: Febrile neutropenia
     Dosage: 1 G, PRN
     Dates: start: 20220505

REACTIONS (1)
  - Febrile neutropenia [Recovered/Resolved]

NARRATIVE: CASE EVENT DATE: 20220816
